FAERS Safety Report 16457815 (Version 7)
Quarter: 2022Q2

REPORT INFORMATION
  Report Type: Spontaneous
  Country: US (occurrence: US)
  Receive Date: 20190620
  Receipt Date: 20220429
  Transmission Date: 20220720
  Serious: No
  Sender: FDA-Public Use
  Company Number: US-PFIZER INC-2017498765

PATIENT
  Age: 51 Year
  Sex: Male

DRUGS (2)
  1. LYRICA [Suspect]
     Active Substance: PREGABALIN
     Indication: Post laminectomy syndrome
     Dosage: 150 MG, 4X/DAY (TAKE 1 CAPSULE BY MOUTH 4 TIMES DAILY)
     Route: 048
  2. LYRICA [Suspect]
     Active Substance: PREGABALIN
     Dosage: 200 MG, 3X/DAY
     Route: 048

REACTIONS (2)
  - Illness [Unknown]
  - Impaired work ability [Unknown]
